FAERS Safety Report 8164565-9 (Version None)
Quarter: 2012Q1

REPORT INFORMATION
  Report Type: 
  Country: None (occurrence: None)
  Receive Date: 20120226
  Receipt Date: 20120215
  Transmission Date: 20120608
  Serious: Yes (Other)
  Sender: FDA-Public Use
  Company Number: ES-BRISTOL-MYERS SQUIBB COMPANY-16401960

PATIENT
  Age: 57 Year
  Sex: Female

DRUGS (5)
  1. RANITIDINE [Concomitant]
  2. DASATINIB [Suspect]
     Indication: CHRONIC MYELOID LEUKAEMIA
     Dosage: REDUCED TO 70 MG
  3. VENTOLIN [Concomitant]
  4. NATECAL D [Concomitant]
  5. ACREL [Concomitant]

REACTIONS (2)
  - POLYNEUROPATHY [None]
  - ISCHAEMIA [None]
